FAERS Safety Report 7771561-X (Version None)
Quarter: 2011Q3

REPORT INFORMATION
  Report Type: 
  Country: None (occurrence: None)
  Receive Date: 20110922
  Receipt Date: 20110413
  Transmission Date: 20111222
  Serious: No
  Sender: FDA-Public Use
  Company Number: US-ASTRAZENECA-2009UW21599

PATIENT
  Age: 48 Year
  Sex: Male
  Weight: 113.4 kg

DRUGS (11)
  1. LORAZEPAM [Concomitant]
     Dates: start: 20011226
  2. LIPITOR [Concomitant]
     Dates: start: 20011226
  3. PROTONIX [Concomitant]
     Dates: start: 20011226
  4. ARICEPT [Concomitant]
     Dates: start: 20011226
  5. GEODON [Concomitant]
     Dates: start: 20010701
  6. SEROQUEL [Suspect]
     Indication: DEPRESSION
     Route: 048
     Dates: start: 19960101
  7. ANAFRANIL [Concomitant]
  8. ANDROGEL [Concomitant]
     Dates: start: 20011226
  9. CELEXA [Concomitant]
     Dates: start: 20011226
  10. SEROQUEL [Suspect]
     Route: 048
     Dates: start: 20011226
  11. RISPERDAL [Concomitant]
     Indication: DEPRESSION
     Dates: start: 20010101, end: 20010101

REACTIONS (7)
  - BLOOD TRIGLYCERIDES INCREASED [None]
  - HYPERLIPIDAEMIA [None]
  - BLOOD CHOLESTEROL INCREASED [None]
  - TYPE 2 DIABETES MELLITUS [None]
  - OBESITY [None]
  - TYPE 1 DIABETES MELLITUS [None]
  - TYPE V HYPERLIPIDAEMIA [None]
